FAERS Safety Report 20745473 (Version 4)
Quarter: 2023Q1

REPORT INFORMATION
  Report Type: Spontaneous
  Country: ES (occurrence: ES)
  Receive Date: 20220425
  Receipt Date: 20230310
  Transmission Date: 20230417
  Serious: Yes (Life-Threatening, Hospitalization, Other)
  Sender: FDA-Public Use
  Company Number: None

PATIENT
  Age: 21 Year
  Sex: Male
  Weight: 63 kg

DRUGS (14)
  1. ACETAMINOPHEN [Suspect]
     Active Substance: ACETAMINOPHEN
     Indication: Product used for unknown indication
     Dosage: 40 GRAM (40 GRAMS (40 TABLETS))
     Route: 048
     Dates: start: 20220325, end: 20220325
  2. ACETAMINOPHEN [Suspect]
     Active Substance: ACETAMINOPHEN
     Dosage: 40 DOSAGE FORM (40 GRAMS (40 TABLET)
     Route: 065
     Dates: start: 20220325, end: 20220325
  3. DESLORATADINE [Suspect]
     Active Substance: DESLORATADINE
     Indication: Product used for unknown indication
     Dosage: 40 MILLIGRAM (40 MG (8 TABLETS))
     Route: 048
     Dates: start: 20220325, end: 20220325
  4. DESLORATADINE [Suspect]
     Active Substance: DESLORATADINE
     Dosage: 8 DOSAGE FORM (40 MG (8 TABLETS))
     Route: 065
     Dates: start: 20220325, end: 20220325
  5. IBUPROFEN [Suspect]
     Active Substance: IBUPROFEN
     Indication: Product used for unknown indication
     Dosage: 12 GRAM (12 GRAMS (20 TABLETS))
     Route: 048
     Dates: start: 20220325, end: 20220325
  6. IBUPROFEN [Suspect]
     Active Substance: IBUPROFEN
     Dosage: 20 DOSAGE FORM (12 GRAMS (20 TABLETS))
     Route: 065
     Dates: start: 20220325, end: 20220325
  7. OMEPRAZOLE [Suspect]
     Active Substance: OMEPRAZOLE
     Indication: Product used for unknown indication
     Dosage: 280 MILLIGRAM (280 MG (14 CAPSULES))
     Route: 048
     Dates: start: 20220325, end: 20220325
  8. OMEPRAZOLE [Suspect]
     Active Substance: OMEPRAZOLE
     Dosage: 14 DOSAGE FORM (280 MG (14 CAPSULE))
     Route: 065
     Dates: start: 20220325, end: 20220325
  9. PREDNISONE [Suspect]
     Active Substance: PREDNISONE
     Indication: Product used for unknown indication
     Dosage: UNK (THE NUMBER OF TABLETS INGESTED IS NOT KNOWN)
     Route: 048
     Dates: start: 20220325, end: 20220325
  10. PREDNISONE [Suspect]
     Active Substance: PREDNISONE
     Dosage: UNK (THE NUMBER OF TABLETS INGESTED IS NOT KNOWN)
     Route: 065
     Dates: start: 20220325, end: 20220325
  11. DOXYLAMINE [Suspect]
     Active Substance: DOXYLAMINE
     Indication: Product used for unknown indication
     Dosage: 350 MILLIGRAM (350 MG (14 TABLETS))
     Route: 048
     Dates: start: 20220325, end: 20220325
  12. DOXYLAMINE [Suspect]
     Active Substance: DOXYLAMINE
     Dosage: 14 DOSAGE FORM (350 MG (14 TABLET))
     Route: 065
     Dates: start: 20220325, end: 20220325
  13. DIAZEPAM [Suspect]
     Active Substance: DIAZEPAM
     Indication: Product used for unknown indication
     Dosage: 150 MILLIGRAM (150 MG (30 TABLETS))
     Route: 048
     Dates: start: 20220325, end: 20220325
  14. DIAZEPAM [Suspect]
     Active Substance: DIAZEPAM
     Dosage: 30 DOSAGE FORM, TOTAL (150 MG (30 TABLETS))
     Route: 048
     Dates: start: 20220325, end: 20220325

REACTIONS (4)
  - Suicide attempt [Recovering/Resolving]
  - Depressed level of consciousness [Recovered/Resolved]
  - Accidental overdose [Unknown]
  - Overdose [Unknown]

NARRATIVE: CASE EVENT DATE: 20220325
